FAERS Safety Report 5129817-5 (Version None)
Quarter: 2006Q4

REPORT INFORMATION
  Report Type: 
  Country: None (occurrence: None)
  Receive Date: 20061012
  Receipt Date: 20061004
  Transmission Date: 20070319
  Serious: Yes (Hospitalization, Disabling)
  Sender: FDA-Public Use
  Company Number: GXKR2006GB06195

PATIENT
  Age: 80 Year
  Sex: Female

DRUGS (17)
  1. ASPIRIN [Suspect]
     Indication: EMBOLISM
     Dosage: 75 MG, QD, ORAL
     Route: 048
  2. WARFARIN SODIUM [Suspect]
     Indication: ATRIAL FIBRILLATION
     Dosage: PRN, ORAL
     Route: 048
     Dates: start: 20030227
  3. AMLODIPINE [Concomitant]
  4. BRIMONIDINE (BRIMONIDINE) [Concomitant]
  5. DORZOLAMIDE (DORZOLAMIDE) [Concomitant]
  6. FERROUS SULPHATE (FERROUS SULFATE) [Concomitant]
  7. FUROSEMIDE [Concomitant]
  8. GLICLAZIDE (GLICLAZIDE) [Concomitant]
  9. LATANOPROST [Concomitant]
  10. LEVOTHYROXINE SODIUM [Concomitant]
  11. METFORMIN HCL [Concomitant]
  12. ACETAMINOPHEN [Concomitant]
  13. PERINDOPRIL ERBUMINE [Concomitant]
  14. QUETIAPINE FUMARATE [Concomitant]
  15. SALBUTAMOL (SALBUTAMOL) [Concomitant]
  16. SENNA (SENNA, SENNA ALEXANDRINA) [Concomitant]
  17. SIMVASTATIN [Concomitant]

REACTIONS (2)
  - HAEMOGLOBIN DECREASED [None]
  - HAEMORRHAGIC STROKE [None]
